FAERS Safety Report 5284334-7 (Version None)
Quarter: 2007Q1

REPORT INFORMATION
  Report Type: 
  Country: None (occurrence: None)
  Receive Date: 20070327
  Receipt Date: 20070323
  Transmission Date: 20070707
  Serious: Yes (Hospitalization)
  Sender: FDA-Public Use
  Company Number: TCI2007A01077

PATIENT
  Age: 76 Year
  Sex: Male

DRUGS (5)
  1. LEUPROLIDE ACETATE [Suspect]
     Indication: PROSTATE CANCER
     Dosage: 11.25 MG, SUBCUTANEOUS
     Route: 058
     Dates: start: 20060817
  2. CASODEX [Suspect]
     Indication: PROSTATE CANCER
     Dosage: 80 MG (80 MG, 1 IN 1 D), PER ORAL
     Route: 048
     Dates: end: 20061115
  3. AMARYL (GLIMEPIRIDE) (TABLETS) [Concomitant]
  4. MAGNESIUM OXIDE HEAVY (PREPARATION FOR ORAL USE (NOS)) [Concomitant]
  5. LENDORMIN D (BROTIZOLAM) (TABLETS) [Concomitant]

REACTIONS (8)
  - ECZEMA [None]
  - GASTRITIS [None]
  - HAEMATURIA [None]
  - INGUINAL HERNIA [None]
  - NEPHROPATHY [None]
  - PNEUMONIA [None]
  - PROTEINURIA [None]
  - RENAL IMPAIRMENT [None]
